FAERS Safety Report 23151561 (Version 1)
Quarter: 2023Q4

REPORT INFORMATION
  Report Type: Spontaneous
  Country: US (occurrence: US)
  Receive Date: 20231107
  Receipt Date: 20231107
  Transmission Date: 20240110
  Serious: No
  Sender: FDA-Public Use
  Company Number: US-Accord-374868

PATIENT
  Sex: Female
  Weight: 99.79 kg

DRUGS (1)
  1. LEVOTHYROXINE SODIUM [Suspect]
     Active Substance: LEVOTHYROXINE SODIUM
     Indication: Hypothyroidism
     Dosage: 3 TABLETS
     Route: 048

REACTIONS (2)
  - Illness [Unknown]
  - Product taste abnormal [Unknown]
